FAERS Safety Report 6070209-2 (Version None)
Quarter: 2009Q1

REPORT INFORMATION
  Report Type: 
  Country: None (occurrence: None)
  Receive Date: 20090209
  Receipt Date: 20090205
  Transmission Date: 20090719
  Serious: Yes (Death)
  Sender: FDA-Public Use
  Company Number: JP-ASTRAZENECA-2009AP01022

PATIENT
  Age: 60 Year
  Sex: Female

DRUGS (8)
  1. IRESSA [Suspect]
     Indication: LUNG ADENOCARCINOMA
     Dosage: DISCONTINUED BETWEEN 08-DEC-2008 AND 11-DEC-2008.
     Route: 048
     Dates: start: 20081205, end: 20090108
  2. CODEINE PHOSPHATE [Concomitant]
     Dosage: DOSE UNKNOWN
     Route: 065
  3. HEAVY MAGNESIUM OXIDE [Concomitant]
     Dosage: DOSE UNKNOWN
     Route: 048
  4. RINDERON [Concomitant]
     Dosage: DOSE UNKNOWN
     Route: 065
  5. ALLOID G [Concomitant]
     Dosage: DOSE UNKNOWN
     Route: 048
  6. MUCOSTA [Concomitant]
     Dosage: DOSE UNKNOWN
     Route: 048
  7. DUROTEP [Concomitant]
     Dosage: DOSE UNKNOWN
     Route: 062
  8. MEIACT [Concomitant]
     Dosage: DOSE UNKNOWN
     Route: 048

REACTIONS (1)
  - PNEUMONITIS [None]
